FAERS Safety Report 4742497-3 (Version None)
Quarter: 2005Q3

REPORT INFORMATION
  Report Type: 
  Country: None (occurrence: None)
  Receive Date: 20050808
  Receipt Date: 20050721
  Transmission Date: 20060218
  Serious: Yes (Other)
  Sender: FDA-Public Use
  Company Number: US_0411107701

PATIENT
  Age: 60 Year
  Sex: Female
  Weight: 55 kg

DRUGS (23)
  1. ZYPREXA [Suspect]
     Dosage: 10 MG IN THE EVENING
  2. PAROXETINE [Concomitant]
  3. GLYBURIDE [Concomitant]
  4. DIAZEPAM [Concomitant]
  5. MEPERIDINE [Concomitant]
  6. SULFAMETHOXAZOLE [Concomitant]
  7. ACETAMINOPHEN W/ CODEINE [Concomitant]
  8. CEPHALEXIN [Concomitant]
  9. BENZTROPINE [Concomitant]
  10. SALSALATE [Concomitant]
  11. HYDROCODONE [Concomitant]
  12. METHOCARBAMOL [Concomitant]
  13. CEFACLOR [Concomitant]
  14. LONOX [Concomitant]
  15. PROMETHAZINE [Concomitant]
  16. ALBUTEROL [Concomitant]
  17. PSEUDOEPHEDRINE HCL [Concomitant]
  18. MONOPRIL [Concomitant]
  19. THEOPHYLLINE [Concomitant]
  20. CIMETIDINE [Concomitant]
  21. GLYBURIDE [Concomitant]
  22. NORTRIPTYLINE HCL [Concomitant]
  23. PAMELOR [Concomitant]

REACTIONS (10)
  - ADRENAL MASS [None]
  - BLOOD CHOLESTEROL INCREASED [None]
  - CYSTITIS [None]
  - DIABETES MELLITUS [None]
  - DIABETIC COMA [None]
  - DIABETIC NEUROPATHY [None]
  - HEPATITIS [None]
  - HYPOAESTHESIA [None]
  - OBESITY [None]
  - PARAESTHESIA [None]
